FAERS Safety Report 5274648-9 (Version None)
Quarter: 2007Q1

REPORT INFORMATION
  Report Type: 
  Country: None (occurrence: None)
  Receive Date: 20070320
  Receipt Date: 20070305
  Transmission Date: 20070707
  Serious: Yes (Death)
  Sender: FDA-Public Use
  Company Number: MEDI-0005035

PATIENT
  Age: 5 Month
  Sex: Female
  Weight: 3.97 kg

DRUGS (7)
  1. SYNAGIS [Suspect]
     Dosage: 100 MG, 1 IN 1 M, INTRAMUSCULAR
     Route: 030
     Dates: start: 20061002, end: 20061002
  2. ACTIGALL [Concomitant]
  3. LEVOTHYROXINE SODIUM [Concomitant]
  4. VITAMIN ADEK [Concomitant]
  5. MULTIVITAMIN WITH IRON [Concomitant]
  6. VITAMIN E (PYRIDOXINE HYDROCHLORIDE) [Concomitant]
  7. CALCIFEROL (ERGOCALCIFEROL) [Concomitant]

REACTIONS (1)
  - ASPIRATION [None]
